FAERS Safety Report 4355056-1 (Version None)
Quarter: 2004Q2

REPORT INFORMATION
  Report Type: 
  Country: None (occurrence: None)
  Receive Date: 20040504
  Receipt Date: 20040423
  Transmission Date: 20050107
  Serious: Yes (Other)
  Sender: FDA-Public Use
  Company Number: 200415402BWH

PATIENT
  Age: 82 Year
  Sex: Female

DRUGS (4)
  1. AVELOX [Suspect]
     Indication: UPPER RESPIRATORY TRACT INFECTION
     Dosage: 400 MG, ONCE, INTRAVENOUS
     Route: 042
     Dates: start: 20040308
  2. AVELOX [Suspect]
     Indication: UPPER RESPIRATORY TRACT INFECTION
     Dosage: 400 MG, QD, ORAL
     Route: 048
     Dates: start: 20040309, end: 20040315
  3. PREDNISONE [Suspect]
     Indication: UPPER RESPIRATORY TRACT INFECTION
     Dates: start: 20040309, end: 20040314
  4. LEVOXYL [Concomitant]

REACTIONS (4)
  - CHEST PAIN [None]
  - DYSPNOEA [None]
  - LUNG NEOPLASM MALIGNANT [None]
  - NERVOUSNESS [None]
